FAERS Safety Report 8969950 (Version 1)
Quarter: 2012Q4

REPORT INFORMATION
  Report Type: 
  Country: US (occurrence: US)
  Receive Date: 20121218
  Receipt Date: 20121218
  Transmission Date: 20130627
  Serious: No
  Sender: FDA-Public Use
  Company Number: US-BRISTOL-MYERS SQUIBB COMPANY-16231219

PATIENT
  Age: 38 Year
  Sex: Female

DRUGS (3)
  1. ABILIFY [Suspect]
     Indication: DEPRESSION
     Dosage: two weeks ago
     Dates: start: 2011
  2. LEXAPRO [Concomitant]
  3. TOPAMAX [Concomitant]

REACTIONS (1)
  - Insomnia [Unknown]
